FAERS Safety Report 10602048 (Version 1)
Quarter: 2014Q4

REPORT INFORMATION
  Report Type: Spontaneous
  Country: DE (occurrence: None)
  Receive Date: 20141120
  Receipt Date: 20141120
  Transmission Date: 20150529
  Serious: Yes (Hospitalization)
  Sender: FDA-Public Use
  Company Number: 2014-DE-015017

PATIENT
  Sex: Male
  Weight: 112 kg

DRUGS (6)
  1. RITALIN (METHYLPHENIDATE HYDROCHLORIDE) [Concomitant]
     Active Substance: METHYLPHENIDATE HYDROCHLORIDE
  2. XYREM [Suspect]
     Active Substance: SODIUM OXYBATE
     Indication: NARCOLEPSY
     Dosage: 3 G, (PM), ORAL
     Route: 048
     Dates: start: 201403, end: 20140520
  3. SELEN (SODIUM SELENITE, TOCOTRIENOIS) [Concomitant]
  4. NOVOTHYRAL (LEVOTHYROXINE SODIUM, LIOTHYRONINE SODIUM) [Concomitant]
  5. RITALIN RETARD (METHYLPHENIDATE HYDROCHLORIDE) [Concomitant]
  6. UMCKALOABO (PELARGONIUM RENIFORME ROOT, PELARGONIUM SIDOIDES ROOT) [Concomitant]

REACTIONS (3)
  - Anal fistula [None]
  - Inappropriate schedule of drug administration [None]
  - Procedural pain [None]

NARRATIVE: CASE EVENT DATE: 201403
